FAERS Safety Report 24387715 (Version 1)
Quarter: 2024Q4

REPORT INFORMATION
  Report Type: Spontaneous
  Country: US (occurrence: None)
  Receive Date: 20241001
  Receipt Date: 20241001
  Transmission Date: 20250115
  Serious: Yes (Hospitalization)
  Sender: Public
  Company Number: None

PATIENT
  Age: 46 Year
  Sex: Male
  Weight: 82 kg

DRUGS (1)
  1. WARFARIN SODIUM [Suspect]
     Active Substance: WARFARIN SODIUM
     Indication: Stent placement
     Dates: start: 20230329

REACTIONS (6)
  - Anaemia [None]
  - Haemorrhage [None]
  - Occult blood positive [None]
  - Gastric ulcer [None]
  - Melaena [None]
  - Arteriovenous malformation [None]

NARRATIVE: CASE EVENT DATE: 20231110
